FAERS Safety Report 13566159 (Version 1)
Quarter: 2017Q2

REPORT INFORMATION
  Report Type: Spontaneous
  Country: US (occurrence: US)
  Receive Date: 20170521
  Receipt Date: 20170521
  Transmission Date: 20170830
  Serious: No
  Sender: FDA-Public Use
  Company Number: US-DRREDDYS-USA/USA/16/0083172

PATIENT
  Sex: Female
  Weight: 51.7 kg

DRUGS (1)
  1. ZENATANE [Suspect]
     Active Substance: ISOTRETINOIN
     Indication: ACNE
     Route: 048
     Dates: end: 20160903

REACTIONS (3)
  - Product odour abnormal [Unknown]
  - No adverse event [Unknown]
  - Exposure to extreme temperature [Unknown]
